FAERS Safety Report 8409917-4 (Version None)
Quarter: 2012Q2

REPORT INFORMATION
  Report Type: 
  Country: None (occurrence: None)
  Receive Date: 20120605
  Receipt Date: 20120522
  Transmission Date: 20120825
  Serious: No
  Sender: FDA-Public Use
  Company Number: TH-JNJFOC-20120520068

PATIENT
  Sex: Male
  Weight: 70 kg

DRUGS (1)
  1. STELARA [Suspect]
     Indication: PSORIASIS
     Route: 058
     Dates: start: 20101115, end: 20111115

REACTIONS (1)
  - MYCOBACTERIUM TUBERCULOSIS COMPLEX TEST POSITIVE [None]
